FAERS Safety Report 18655432 (Version 1)
Quarter: 2020Q4

REPORT INFORMATION
  Report Type: Spontaneous
  Country: GB (occurrence: GB)
  Receive Date: 20201223
  Receipt Date: 20201223
  Transmission Date: 20210114
  Serious: Yes (Life-Threatening, Other)
  Sender: FDA-Public Use
  Company Number: GB-009507513-2012GBR008309

PATIENT
  Age: 25 Year
  Sex: Female
  Weight: 83 kg

DRUGS (1)
  1. IMPLANON [Suspect]
     Active Substance: ETONOGESTREL
     Indication: CONTRACEPTION
     Dosage: UNK
     Route: 059
     Dates: start: 20070801, end: 20161017

REACTIONS (7)
  - Increased appetite [Recovering/Resolving]
  - Mood swings [Recovering/Resolving]
  - Panic attack [Recovering/Resolving]
  - Suicide attempt [Recovered/Resolved]
  - Abnormal weight gain [Recovering/Resolving]
  - Social anxiety disorder [Recovering/Resolving]
  - Depression [Recovering/Resolving]

NARRATIVE: CASE EVENT DATE: 20070901
